FAERS Safety Report 24065810 (Version 1)
Quarter: 2024Q3

REPORT INFORMATION
  Report Type: Spontaneous
  Country: IT (occurrence: IT)
  Receive Date: 20240709
  Receipt Date: 20240709
  Transmission Date: 20241016
  Serious: Yes (Life-Threatening, Other)
  Sender: TAKEDA
  Company Number: IT-TAKEDA-2024TUS067131

PATIENT
  Sex: Female

DRUGS (5)
  1. ANTIHEMOPHILIC FACTOR, HUMAN RECOMBINANT [Suspect]
     Active Substance: ANTIHEMOPHILIC FACTOR, HUMAN RECOMBINANT
     Indication: Von Willebrand^s disease
     Dosage: UNK
     Route: 040
  2. ANTIHEMOPHILIC FACTOR, HUMAN RECOMBINANT [Suspect]
     Active Substance: ANTIHEMOPHILIC FACTOR, HUMAN RECOMBINANT
     Indication: Von Willebrand^s disease
     Dosage: UNK
     Route: 040
  3. ANTIHEMOPHILIC FACTOR, HUMAN RECOMBINANT [Suspect]
     Active Substance: ANTIHEMOPHILIC FACTOR, HUMAN RECOMBINANT
     Indication: Von Willebrand^s disease
     Dosage: UNK
     Route: 040
  4. EMICIZUMAB [Concomitant]
     Active Substance: EMICIZUMAB
     Indication: Prophylaxis
     Dosage: UNK UNK, 1/WEEK
     Route: 065
  5. EMICIZUMAB [Concomitant]
     Active Substance: EMICIZUMAB
     Indication: Von Willebrand^s disease

REACTIONS (5)
  - Anaphylactic reaction [Unknown]
  - Von Willebrand^s factor antibody positive [Unknown]
  - Anti factor VIII antibody positive [Unknown]
  - Hypersensitivity [Recovered/Resolved]
  - Off label use [Unknown]
